FAERS Safety Report 22640841 (Version 1)
Quarter: 2023Q2

REPORT INFORMATION
  Report Type: Spontaneous
  Country: CZ (occurrence: None)
  Receive Date: 20230626
  Receipt Date: 20230626
  Transmission Date: 20230722
  Serious: Yes (Other)
  Sender: FDA-Public Use
  Company Number: CZ-ROCHE-3372203

PATIENT
  Age: 37 Year
  Sex: Male

DRUGS (2)
  1. OCREVUS [Suspect]
     Active Substance: OCRELIZUMAB
     Indication: Multiple sclerosis
     Dosage: THERAPY DATES WERE 29/JUL/2020, 27/JAN/2021, 29/JUL/2021, 15/FEB/2022 AND 15/AUG/2022
     Route: 065
     Dates: start: 20200129
  2. ERGOCALCIFEROL [Concomitant]
     Active Substance: ERGOCALCIFEROL

REACTIONS (7)
  - Inflammatory marker increased [Unknown]
  - Respiratory tract infection [Unknown]
  - Dyspnoea exertional [Unknown]
  - Pyrexia [Unknown]
  - COVID-19 [Unknown]
  - Lung disorder [Unknown]
  - Pneumonitis [Unknown]

NARRATIVE: CASE EVENT DATE: 20230201
